FAERS Safety Report 6133752-3 (Version None)
Quarter: 2009Q1

REPORT INFORMATION
  Report Type: 
  Country: None (occurrence: None)
  Receive Date: 20090326
  Receipt Date: 20090318
  Transmission Date: 20090719
  Serious: Yes (Other)
  Sender: FDA-Public Use
  Company Number: BR-JNJFOC-20081006811

PATIENT
  Sex: Male

DRUGS (1)
  1. RISPERDAL [Suspect]
     Indication: PSYCHOMOTOR HYPERACTIVITY
     Route: 065

REACTIONS (3)
  - HAEMATOMA [None]
  - OFF LABEL USE [None]
  - PLATELET AGGREGATION DECREASED [None]
